FAERS Safety Report 21824680 (Version 1)
Quarter: 2023Q1

REPORT INFORMATION
  Report Type: Report from Study
  Country: PR (occurrence: PR)
  Receive Date: 20230105
  Receipt Date: 20230105
  Transmission Date: 20230418
  Serious: No
  Sender: FDA-Public Use
  Company Number: PR-ABBVIE-4258794

PATIENT
  Sex: Female
  Weight: 50.35 kg

DRUGS (1)
  1. VENCLEXTA [Suspect]
     Active Substance: VENETOCLAX
     Indication: Plasma cell myeloma
     Route: 048
     Dates: start: 20220612

REACTIONS (2)
  - Oesophageal pain [Recovered/Resolved]
  - Gastrooesophageal reflux disease [Unknown]
